FAERS Safety Report 8228767-5 (Version None)
Quarter: 2012Q1

REPORT INFORMATION
  Report Type: 
  Country: None (occurrence: None)
  Receive Date: 20120322
  Receipt Date: 20110610
  Transmission Date: 20120608
  Serious: Yes (Other)
  Sender: FDA-Public Use
  Company Number: US-GLAXOSMITHKLINE-A0934541A

PATIENT
  Sex: Male

DRUGS (1)
  1. AVANDAMET [Suspect]
     Indication: DIABETES MELLITUS
     Route: 048
     Dates: start: 20080806, end: 20090309

REACTIONS (4)
  - CALCIUM DEFICIENCY [None]
  - MYOCARDIAL INFARCTION [None]
  - DYSPNOEA [None]
  - CHEST PAIN [None]
